FAERS Safety Report 11052001 (Version 1)
Quarter: 2015Q2

REPORT INFORMATION
  Report Type: Spontaneous
  Country: FR (occurrence: FR)
  Receive Date: 20150421
  Receipt Date: 20150421
  Transmission Date: 20150821
  Serious: Yes (Other)
  Sender: FDA-Public Use
  Company Number: FR-BAXTER-2015BAX020147

PATIENT
  Age: 1 Year
  Sex: Female
  Weight: 10.5 kg

DRUGS (12)
  1. ONDANSETRON [Concomitant]
     Active Substance: ONDANSETRON
     Indication: PRODUCT USED FOR UNKNOWN INDICATION
     Route: 065
  2. UROMITEXAN 5 G/50 ML, SOLUTION INJECTABLE POUR PERFUSION EN FLACON [Suspect]
     Active Substance: MESNA
     Indication: PRODUCT USED FOR UNKNOWN INDICATION
     Dosage: FOURTH COURSE OF CHEMOTHERAPY
     Route: 042
     Dates: start: 20120507, end: 20120508
  3. ESOMEPRAZOLE [Concomitant]
     Active Substance: ESOMEPRAZOLE
     Indication: PRODUCT USED FOR UNKNOWN INDICATION
     Route: 065
  4. MYCOSTATINE [Concomitant]
     Indication: PRODUCT USED FOR UNKNOWN INDICATION
     Route: 065
  5. VINCRISTINE [Suspect]
     Active Substance: VINCRISTINE
     Indication: EMBRYONAL RHABDOMYOSARCOMA
     Dosage: THREE COURSES
     Route: 065
     Dates: start: 201203
  6. ACTINOMYCINES [Suspect]
     Active Substance: UNSPECIFIED INGREDIENT
     Dosage: 50 UG/KG  ON D1; FOURTH COURSE
     Route: 042
     Dates: start: 20120507, end: 20120508
  7. BICARBONATE [Concomitant]
     Active Substance: BICARBONATE ION
     Indication: PRODUCT USED FOR UNKNOWN INDICATION
     Route: 048
  8. HOLOXAN 2000 MG, POUDRE POUR USAGE PARENT?RAL [Suspect]
     Active Substance: IFOSFAMIDE
     Indication: EMBRYONAL RHABDOMYOSARCOMA
     Dosage: THREE COURSES
     Route: 065
     Dates: start: 201203
  9. ACTINOMYCINES [Suspect]
     Active Substance: UNSPECIFIED INGREDIENT
     Indication: EMBRYONAL RHABDOMYOSARCOMA
     Dosage: THREE COURSES
     Route: 065
     Dates: start: 201203
  10. PLITICAN [Concomitant]
     Active Substance: ALIZAPRIDE HYDROCHLORIDE
     Indication: PRODUCT USED FOR UNKNOWN INDICATION
     Route: 065
  11. DEXTRION [Concomitant]
     Indication: DEHYDRATION
     Route: 065
  12. HOLOXAN 2000 MG, POUDRE POUR USAGE PARENT?RAL [Suspect]
     Active Substance: IFOSFAMIDE
     Dosage: 100 MG/KG ON D1 AND D2, FOURTH COURSE
     Route: 042
     Dates: start: 20120507, end: 20120508

REACTIONS (2)
  - Vocal cord paralysis [Unknown]
  - Encephalopathy [Recovered/Resolved]

NARRATIVE: CASE EVENT DATE: 20120509
